FAERS Safety Report 4837798-4 (Version None)
Quarter: 2005Q4

REPORT INFORMATION
  Report Type: 
  Country: None (occurrence: None)
  Receive Date: 20051128
  Receipt Date: 20051004
  Transmission Date: 20060501
  Serious: Yes (Hospitalization)
  Sender: FDA-Public Use
  Company Number: US-MERCK-0510USA03051

PATIENT
  Age: 46 Year
  Sex: Male
  Weight: 75 kg

DRUGS (7)
  1. VIOXX [Suspect]
     Indication: ARTHRITIS
     Route: 048
     Dates: start: 20000711, end: 20010519
  2. DITROPAN [Concomitant]
     Route: 065
  3. DETROL [Concomitant]
     Route: 065
  4. THEOPHYLLINE [Concomitant]
     Route: 065
  5. FLOMAX (MORNIFLUMATE) [Concomitant]
     Route: 065
  6. HYDROCHLOROTHIAZIDE AND TRIAMTERENE [Concomitant]
     Route: 065
  7. HYDROXYZINE PAMOATE [Concomitant]
     Route: 065

REACTIONS (1)
  - CEREBROVASCULAR ACCIDENT [None]
